FAERS Safety Report 20031348 (Version 1)
Quarter: 2021Q4

REPORT INFORMATION
  Report Type: Spontaneous
  Country: US (occurrence: US)
  Receive Date: 20211103
  Receipt Date: 20211103
  Transmission Date: 20220303
  Serious: Yes (Death)
  Sender: FDA-Public Use
  Company Number: US-ALLERGAN-2044045US

PATIENT
  Sex: Male

DRUGS (33)
  1. VRAYLAR [Suspect]
     Active Substance: CARIPRAZINE
     Indication: Bipolar I disorder
     Dosage: 5 MG
     Route: 048
  2. VRAYLAR [Suspect]
     Active Substance: CARIPRAZINE
     Dosage: 4.5 MG
     Route: 048
  3. VRAYLAR [Suspect]
     Active Substance: CARIPRAZINE
     Dosage: 3 MG
     Route: 048
     Dates: start: 20200626
  4. LATUDA [Suspect]
     Active Substance: LURASIDONE HYDROCHLORIDE
     Indication: Product used for unknown indication
     Dosage: UNK
  5. ATORVASTATIN [Concomitant]
     Active Substance: ATORVASTATIN
     Dosage: 10 MG, QHS
     Route: 048
  6. KLONOPIN [Concomitant]
     Active Substance: CLONAZEPAM
     Dosage: 1 MG, TID
     Route: 048
  7. ACETAMINOPHEN [Concomitant]
     Active Substance: ACETAMINOPHEN
     Dosage: 500 MG, BID, PRN
     Route: 048
  8. CELECOXIB [Concomitant]
     Active Substance: CELECOXIB
     Dosage: 200 MG, BID
     Route: 048
  9. DEXTROAMPHET SACCHARAT, AMPHET ASPARTATE, DEXTROAMPHET SULFATE AND AMP [Concomitant]
     Active Substance: AMPHETAMINE ASPARTATE\AMPHETAMINE SULFATE\DEXTROAMPHETAMINE SACCHARATE\DEXTROAMPHETAMINE SULFATE
     Dosage: 30 MG, TID
     Route: 048
  10. DEPAKOTE ER [Concomitant]
     Active Substance: DIVALPROEX SODIUM
     Dosage: TAKE ONE TABLET BY MOUTH EVERY MORNING AND TWO TABLETS BY MOUTH EVERY NIGHT
  11. GABAPENTIN [Concomitant]
     Active Substance: GABAPENTIN
     Dosage: 800 MG, QHS
     Route: 048
  12. GLYBURIDE [Concomitant]
     Active Substance: GLYBURIDE
     Dosage: 5 MG, BID
     Route: 048
  13. HYDROCHLOROTHIAZIDE [Concomitant]
     Active Substance: HYDROCHLOROTHIAZIDE
     Dosage: 25 MG, BID
     Route: 048
  14. IBUPROFEN [Concomitant]
     Active Substance: IBUPROFEN
     Dosage: 800 MG, PRN
     Route: 048
  15. INSULIN ASPART [Concomitant]
     Active Substance: INSULIN ASPART
     Dosage: 0 MULTIPLE UNITS SUBCUT WM PRN
     Route: 058
  16. INSULIN GLARGINE [Concomitant]
     Active Substance: INSULIN GLARGINE
     Dosage: 2 MULTIPLE UNITS SUBCUT BEDTIME
  17. LISINOPRIL [Concomitant]
     Active Substance: LISINOPRIL
     Dosage: 2.5 MG, QHS
     Route: 048
  18. Megamen Energy/Metabolism Gnc [Concomitant]
     Dosage: 2 DF, PRN
     Route: 048
  19. MELOXICAM [Concomitant]
     Active Substance: MELOXICAM
     Dosage: 15 MG, QHS
     Route: 048
  20. METFORMIN [Concomitant]
     Active Substance: METFORMIN HYDROCHLORIDE
     Dosage: 500 MG, BID
     Route: 048
  21. multivit-min-folic acid 300 mcg-lycopene 600 mcg-lutein 300 mcg tablet [Concomitant]
     Dosage: 1 EA PO DAILY
     Route: 048
  22. NITROGLYCERIN [Concomitant]
     Active Substance: NITROGLYCERIN
     Dosage: 0.4 MG, PRN
     Route: 060
  23. ORPHENADRINE CITRATE [Concomitant]
     Active Substance: ORPHENADRINE CITRATE
     Dosage: 100 MG, BID, PRN
     Route: 048
  24. OXYCODONE AND ACETAMINOPHEN [Concomitant]
     Active Substance: ACETAMINOPHEN\OXYCODONE HYDROCHLORIDE
     Dosage: 10 MG, QID, PRN
     Route: 048
  25. PANTOPRAZOLE [Concomitant]
     Active Substance: PANTOPRAZOLE
     Dosage: 20 MG, QAM
  26. PIOGLITAZONE [Concomitant]
     Active Substance: PIOGLITAZONE
     Dosage: 45 MG, QHS
     Route: 048
  27. POTASSIUM CHLORIDE [Concomitant]
     Active Substance: POTASSIUM CHLORIDE
     Dosage: 20 MEQ, BID
     Route: 048
  28. PROMETHAZINE [Concomitant]
     Active Substance: PROMETHAZINE HYDROCHLORIDE
     Dosage: 25 MG, Q4HR,PRN
  29. RANOLAZINE [Concomitant]
     Active Substance: RANOLAZINE
     Dosage: 500 MG, BID
     Route: 048
  30. SPIRONOLACTONE [Concomitant]
     Active Substance: SPIRONOLACTONE
     Dosage: 25 MG, QD
     Route: 048
  31. TADALAFIL [Concomitant]
     Active Substance: TADALAFIL
     Dosage: 5 MG, QHS
     Route: 048
  32. TAMSULOSIN [Concomitant]
     Active Substance: TAMSULOSIN
     Dosage: 0.8 MG, QHS
     Route: 048
  33. TESTOSTERONE CYPIONATE [Concomitant]
     Active Substance: TESTOSTERONE CYPIONATE
     Dosage: 200 MG IM SU
     Route: 030

REACTIONS (3)
  - Completed suicide [Fatal]
  - Bradycardia [Unknown]
  - Extrasystoles [Unknown]
